FAERS Safety Report 7258332-8 (Version None)
Quarter: 2011Q1

REPORT INFORMATION
  Report Type: 
  Country: None (occurrence: None)
  Receive Date: 20110129
  Receipt Date: 20100709
  Transmission Date: 20110831
  Serious: No
  Sender: FDA-Public Use
  Company Number: US-ABBOTT-10P-163-0656367-00

PATIENT
  Age: 56 Year
  Sex: Male

DRUGS (3)
  1. HUMIRA [Suspect]
     Indication: CROHN'S DISEASE
     Route: 058
     Dates: start: 20100421, end: 20100630
  2. PROBIOTIC [Concomitant]
     Indication: PRODUCT USED FOR UNKNOWN INDICATION
  3. MULTI-VITAMIN [Concomitant]
     Indication: PRODUCT USED FOR UNKNOWN INDICATION

REACTIONS (14)
  - SKIN EXFOLIATION [None]
  - RHINORRHOEA [None]
  - RASH PRURITIC [None]
  - SWELLING [None]
  - MUSCULAR WEAKNESS [None]
  - RASH PUSTULAR [None]
  - DRUG INEFFECTIVE [None]
  - TREMOR [None]
  - RASH ERYTHEMATOUS [None]
  - ABDOMINAL DISTENSION [None]
  - NERVOUSNESS [None]
  - INSOMNIA [None]
  - RASH [None]
  - SEXUAL DYSFUNCTION [None]
